FAERS Safety Report 7568198-4 (Version None)
Quarter: 2011Q2

REPORT INFORMATION
  Report Type: 
  Country: None (occurrence: None)
  Receive Date: 20110617
  Receipt Date: 20110613
  Transmission Date: 20111010
  Serious: Yes (Disabling, Other)
  Sender: FDA-Public Use
  Company Number: ALA_01390_2010

PATIENT
  Sex: Male

DRUGS (1)
  1. REGLAN [Suspect]
     Indication: GASTROINTESTINAL DISORDER
     Dosage: (10 MG BID ORAL)
     Route: 048
     Dates: start: 19930501, end: 20090501

REACTIONS (8)
  - PAIN [None]
  - ECONOMIC PROBLEM [None]
  - INJURY [None]
  - MENTAL DISORDER [None]
  - INCORRECT DRUG ADMINISTRATION DURATION [None]
  - ACTIVITIES OF DAILY LIVING IMPAIRED [None]
  - NERVOUS SYSTEM DISORDER [None]
  - EXTRAPYRAMIDAL DISORDER [None]
